FAERS Safety Report 9744840 (Version 1)
Quarter: 2013Q4

REPORT INFORMATION
  Report Type: Spontaneous
  Country: IT (occurrence: IT)
  Receive Date: 20131211
  Receipt Date: 20131211
  Transmission Date: 20140711
  Serious: Yes (Hospitalization)
  Sender: FDA-Public Use
  Company Number: IT-ROCHE-1315915

PATIENT
  Age: 34 Year
  Sex: Female

DRUGS (9)
  1. RIVOTRIL [Suspect]
     Indication: BIPOLAR DISORDER
     Route: 048
     Dates: start: 20131108, end: 20131108
  2. NOZINAN (ITALY) [Suspect]
     Indication: BIPOLAR DISORDER
     Route: 048
     Dates: start: 20131108, end: 20131108
  3. ASENAPINE [Concomitant]
     Route: 065
  4. ASENAPINE [Concomitant]
     Route: 065
  5. LAMOTRIGINE [Concomitant]
     Route: 065
  6. DULOXETINE [Concomitant]
     Route: 065
  7. DIAZEPAM [Concomitant]
     Dosage: 20 DROPS THREE TIMES A DAY
     Route: 065
  8. TRIAZOLAM [Concomitant]
     Route: 065
  9. LEVOMEPROMAZINE [Concomitant]
     Route: 065

REACTIONS (3)
  - Abdominal pain upper [Recovered/Resolved]
  - Toxicity to various agents [Recovered/Resolved]
  - Drug abuse [Unknown]
